FAERS Safety Report 16689113 (Version 1)
Quarter: 2019Q3

REPORT INFORMATION
  Report Type: Spontaneous
  Country: US (occurrence: US)
  Receive Date: 20190809
  Receipt Date: 20190809
  Transmission Date: 20191004
  Serious: No
  Sender: FDA-Public Use
  Company Number: US-009507513-1908USA003518

PATIENT
  Age: 55 Year
  Sex: Female

DRUGS (4)
  1. CUBICIN [Suspect]
     Active Substance: DAPTOMYCIN
     Dosage: 6 MILLIGRAM/KILOGRAM, UNK (ON DAYS 62-65)
  2. CUBICIN [Suspect]
     Active Substance: DAPTOMYCIN
     Indication: STAPHYLOCOCCAL INFECTION
     Dosage: 6 MILLIGRAM/KILOGRAM, UNK (ON DAYS 8-56)
  3. LINEZOLID. [Suspect]
     Active Substance: LINEZOLID
     Dosage: UNK (ON DAYS 66-77)
  4. LINEZOLID. [Suspect]
     Active Substance: LINEZOLID
     Indication: STAPHYLOCOCCAL INFECTION
     Dosage: UNK (ON DAYS 3-8)

REACTIONS (1)
  - Treatment failure [Unknown]
